FAERS Safety Report 6889969-3 (Version None)
Quarter: 2010Q3

REPORT INFORMATION
  Report Type: 
  Country: None (occurrence: None)
  Receive Date: 20100730
  Receipt Date: 20080620
  Transmission Date: 20110219
  Serious: No
  Sender: FDA-Public Use
  Company Number: US-PFIZER INC-2008051493

PATIENT
  Sex: Female

DRUGS (1)
  1. LIPITOR [Suspect]
     Route: 048
     Dates: end: 20080617

REACTIONS (7)
  - BALANCE DISORDER [None]
  - DIZZINESS [None]
  - DYSPHAGIA [None]
  - FATIGUE [None]
  - MUSCULAR WEAKNESS [None]
  - PARAESTHESIA [None]
  - SOMNOLENCE [None]
